FAERS Safety Report 7152046-0 (Version None)
Quarter: 2010Q4

REPORT INFORMATION
  Report Type: 
  Country: None (occurrence: None)
  Receive Date: 20101212
  Receipt Date: 20101129
  Transmission Date: 20110411
  Serious: Yes (Disabling)
  Sender: FDA-Public Use
  Company Number: GB-MYLANLABS-2010S1021855

PATIENT
  Age: 69 Year
  Sex: Female

DRUGS (16)
  1. BISOPROLOL [Suspect]
     Indication: ATRIAL FIBRILLATION
     Route: 048
     Dates: start: 20100401, end: 20100502
  2. ADCAL-D3 [Concomitant]
     Indication: PRODUCT USED FOR UNKNOWN INDICATION
  3. ASPIRIN [Concomitant]
     Indication: PRODUCT USED FOR UNKNOWN INDICATION
  4. CETRIZINE [Concomitant]
     Indication: PRODUCT USED FOR UNKNOWN INDICATION
  5. CODEINE [Concomitant]
     Indication: PRODUCT USED FOR UNKNOWN INDICATION
  6. FENTANYL CITRATE [Concomitant]
     Indication: PRODUCT USED FOR UNKNOWN INDICATION
  7. LANSOPRAZOLE [Concomitant]
     Indication: PRODUCT USED FOR UNKNOWN INDICATION
  8. PARACETAMOL [Concomitant]
     Indication: PRODUCT USED FOR UNKNOWN INDICATION
  9. RISPERIDONE [Concomitant]
     Indication: PRODUCT USED FOR UNKNOWN INDICATION
  10. ASPIRIN [Concomitant]
  11. CETIRIZINE HCL [Concomitant]
     Indication: PRODUCT USED FOR UNKNOWN INDICATION
  12. CODEINE [Concomitant]
  13. FENTANYL CITRATE [Concomitant]
  14. LANSOPRAZOLE [Concomitant]
  15. PARACETAMOL [Concomitant]
  16. RISEDRONATE SODIUM [Concomitant]
     Indication: PRODUCT USED FOR UNKNOWN INDICATION

REACTIONS (2)
  - OEDEMA PERIPHERAL [None]
  - SKIN ULCER [None]
